FAERS Safety Report 8910659 (Version 1)
Quarter: 2012Q4

REPORT INFORMATION
  Report Type: Spontaneous
  Country: US (occurrence: None)
  Receive Date: 20121116
  Receipt Date: 20121116
  Transmission Date: 20130627
  Serious: Yes (Other)
  Sender: FDA-Public Use
  Company Number: None

PATIENT
  Age: 63 Year
  Sex: Female
  Weight: 48.5 kg

DRUGS (1)
  1. POTASSIUM CHLORIDE [Suspect]
     Indication: TPN
     Dosage: 250 ml bag
     Dates: start: 20120815, end: 20120826

REACTIONS (1)
  - Bronchopulmonary aspergillosis [None]
